FAERS Safety Report 11093911 (Version 1)
Quarter: 2015Q2

REPORT INFORMATION
  Report Type: Spontaneous
  Country: FR (occurrence: FR)
  Receive Date: 20150506
  Receipt Date: 20150506
  Transmission Date: 20150821
  Serious: Yes (Life-Threatening, Hospitalization, Other)
  Sender: FDA-Public Use
  Company Number: FR-GILEAD-2015-0152046

PATIENT
  Age: 62 Year
  Sex: Male

DRUGS (4)
  1. MABTHERA [Suspect]
     Active Substance: RITUXIMAB
     Indication: CHRONIC LEUKAEMIA
     Dosage: UNK, CYCLICAL
     Route: 065
     Dates: start: 201410, end: 201502
  2. ZYDELIG [Suspect]
     Active Substance: IDELALISIB
     Indication: CHRONIC LEUKAEMIA
     Dosage: 150 MG, BID
     Route: 048
     Dates: start: 201410, end: 201502
  3. BISOPROLOL [Concomitant]
     Active Substance: BISOPROLOL
  4. PREVISCAN (PENTOXIFYLLINE) [Concomitant]
     Active Substance: PENTOXIFYLLINE

REACTIONS (2)
  - Hypoxia [Recovering/Resolving]
  - Interstitial lung disease [Unknown]

NARRATIVE: CASE EVENT DATE: 20150313
